FAERS Safety Report 16080294 (Version 1)
Quarter: 2019Q1

REPORT INFORMATION
  Report Type: Spontaneous
  Country: US (occurrence: US)
  Receive Date: 20190315
  Receipt Date: 20190315
  Transmission Date: 20190418
  Serious: No
  Sender: FDA-Public Use
  Company Number: US-PTC THERAPEUTICS, INC.-US-2018PTC001013

PATIENT

DRUGS (2)
  1. EMFLAZA [Suspect]
     Active Substance: DEFLAZACORT
     Indication: DUCHENNE MUSCULAR DYSTROPHY
     Dosage: 120 MG, EVERY FRIDAY AND SATURDAY
     Route: 048
     Dates: start: 20170708
  2. LISINOPRIL. [Concomitant]
     Active Substance: LISINOPRIL
     Indication: PRODUCT USED FOR UNKNOWN INDICATION

REACTIONS (8)
  - Psychotic disorder [Recovered/Resolved]
  - Developmental delay [Unknown]
  - Cardiac disorder [Not Recovered/Not Resolved]
  - Aggression [Recovered/Resolved]
  - Off label use [Unknown]
  - Urinary incontinence [Not Recovered/Not Resolved]
  - Pulmonary function test decreased [Not Recovered/Not Resolved]
  - Enuresis [Unknown]

NARRATIVE: CASE EVENT DATE: 20180924
